FAERS Safety Report 6803713-7 (Version None)
Quarter: 2010Q2

REPORT INFORMATION
  Report Type: 
  Country: None (occurrence: None)
  Receive Date: 20100628
  Receipt Date: 20100623
  Transmission Date: 20101027
  Serious: Yes (Hospitalization)
  Sender: FDA-Public Use
  Company Number: FR-BAXTER-2010BH016814

PATIENT
  Age: 53 Year
  Sex: Female

DRUGS (10)
  1. ENDOXAN BAXTER [Suspect]
     Indication: NON-HODGKIN'S LYMPHOMA STAGE IV
     Route: 042
     Dates: end: 20100504
  2. MABTHERA [Suspect]
     Indication: NON-HODGKIN'S LYMPHOMA
     Route: 042
     Dates: end: 20100504
  3. DOXORUBICIN HCL [Suspect]
     Indication: NON-HODGKIN'S LYMPHOMA
     Route: 042
     Dates: end: 20100504
  4. VINCRISTINE SULFATE [Suspect]
     Indication: NON-HODGKIN'S LYMPHOMA
     Route: 042
     Dates: end: 20100504
  5. PREDNISONE [Suspect]
     Indication: NON-HODGKIN'S LYMPHOMA
     Route: 042
     Dates: end: 20100504
  6. FOSAVANCE [Suspect]
     Indication: OSTEOPOROSIS
     Route: 048
     Dates: end: 20100507
  7. KETOPROFEN [Suspect]
     Indication: BACK PAIN
     Route: 048
     Dates: start: 20100509, end: 20100509
  8. FEMARA [Concomitant]
     Indication: DRUG USE FOR UNKNOWN INDICATION
     Route: 065
  9. PLAVIX [Concomitant]
     Indication: DRUG USE FOR UNKNOWN INDICATION
     Route: 065
  10. ACEBUTOLOL [Concomitant]
     Indication: DRUG USE FOR UNKNOWN INDICATION
     Route: 065

REACTIONS (1)
  - RENAL FAILURE ACUTE [None]
